FAERS Safety Report 6588740-X (Version None)
Quarter: 2010Q1

REPORT INFORMATION
  Report Type: 
  Country: None (occurrence: None)
  Receive Date: 20100218
  Receipt Date: 20100208
  Transmission Date: 20100710
  Serious: Yes (Hospitalization, Other)
  Sender: FDA-Public Use
  Company Number: PHHY2009BR59164

PATIENT
  Sex: Male

DRUGS (11)
  1. GALVUS MET [Suspect]
     Dosage: 1 DF, BID (MORNING AND NIGHT)
  2. AMIODARONE HYDROCHLORIDE [Suspect]
     Indication: TREMOR
     Dosage: ONCE A DAY
  3. DIAMICRON [Concomitant]
     Indication: DIABETES MELLITUS
     Dosage: 30 MG, UNK
  4. DIAMICRON [Concomitant]
     Dosage: 2 TABLETS IN THE MORNING AND ONE TABLET AT NIGHT
  5. DIAMICRON [Concomitant]
     Dosage: 2 TABLETS DAILY
  6. DIAMICRON [Concomitant]
     Dosage: 2 TABLETS IN THE MORNING AND ONE TABLET AT NIGHT
  7. NATRILIX [Concomitant]
     Indication: HYPERTENSION
     Dosage: 1.5 MG, UNK
  8. DAONIL [Concomitant]
     Dosage: TWICE A DAY
  9. METFORMIN HYDROCHLORIDE [Concomitant]
     Dosage: 850 MG, BID
  10. PANTOPRAZOLE [Concomitant]
  11. METFORMIN HYDROCHLORIDE [Concomitant]
     Dosage: 850 MG, TID

REACTIONS (6)
  - ABDOMINAL PAIN UPPER [None]
  - HEADACHE [None]
  - HYPERGLYCAEMIA [None]
  - NECK PAIN [None]
  - PANCREATITIS [None]
  - RETCHING [None]
